FAERS Safety Report 6224849-8 (Version None)
Quarter: 2009Q2

REPORT INFORMATION
  Report Type: 
  Country: None (occurrence: None)
  Receive Date: 20090612
  Receipt Date: 20090401
  Transmission Date: 20091009
  Serious: No
  Sender: FDA-Public Use
  Company Number: US-ABBOTT-09P-163-0565469-00

PATIENT
  Sex: Female
  Weight: 72.64 kg

DRUGS (3)
  1. HUMIRA [Suspect]
     Indication: SKIN DISORDER
     Dosage: LOADING DOSE
     Route: 058
     Dates: start: 20090130, end: 20090130
  2. HUMIRA [Suspect]
     Dates: start: 20090206, end: 20090206
  3. HUMIRA [Suspect]
     Dates: start: 20090220

REACTIONS (4)
  - DIZZINESS [None]
  - DYSPNOEA [None]
  - INJECTION SITE IRRITATION [None]
  - TREMOR [None]
